FAERS Safety Report 4420871-2 (Version None)
Quarter: 2004Q3

REPORT INFORMATION
  Report Type: 
  Country: None (occurrence: None)
  Receive Date: 20040809
  Receipt Date: 20040809
  Transmission Date: 20050211
  Serious: Yes (Hospitalization)
  Sender: FDA-Public Use
  Company Number: None

PATIENT
  Age: 54 Year
  Sex: Female
  Weight: 70.7611 kg

DRUGS (6)
  1. CRESTOR [Suspect]
     Indication: HYPERLIPIDAEMIA
     Dosage: 20 MG DAILY; 10MG DAILY
     Dates: start: 20030911, end: 20040415
  2. CRESTOR [Suspect]
     Indication: HYPERLIPIDAEMIA
     Dosage: 20 MG DAILY; 10MG DAILY
     Dates: start: 20040415, end: 20040621
  3. .. [Concomitant]
  4. DIOVAN [Concomitant]
  5. TAMOXIFEN CITRATE [Concomitant]
  6. LEXAPRO [Concomitant]

REACTIONS (1)
  - JAUNDICE [None]
